FAERS Safety Report 9803320 (Version 1)
Quarter: 2014Q1

REPORT INFORMATION
  Report Type: Spontaneous
  Country: US (occurrence: None)
  Receive Date: 20140107
  Receipt Date: 20140107
  Transmission Date: 20141002
  Serious: Yes (Hospitalization)
  Sender: FDA-Public Use
  Company Number: None

PATIENT
  Age: 66 Year
  Sex: Female
  Weight: 67 kg

DRUGS (2)
  1. DENOSUMAB 60MG AMGEN [Suspect]
     Indication: BONE LOSS
     Route: 058
     Dates: start: 20130423
  2. DENOSUMAB 60MG AMGEN [Suspect]
     Indication: OSTEOPOROSIS
     Route: 058
     Dates: start: 20130423

REACTIONS (6)
  - Hypoparathyroidism [None]
  - Paraesthesia [None]
  - Asthenia [None]
  - Vision blurred [None]
  - Pyrexia [None]
  - Hypocalcaemia [None]
